FAERS Safety Report 15831851 (Version 1)
Quarter: 2018Q4

REPORT INFORMATION
  Report Type: Spontaneous
  Country: US (occurrence: US)
  Receive Date: 20181219
  Receipt Date: 20181219
  Transmission Date: 20190205
  Serious: No
  Sender: FDA-Public Use
  Company Number: None

PATIENT
  Age: 44 Year
  Sex: Male

DRUGS (1)
  1. ENBREL [Suspect]
     Active Substance: ETANERCEPT
     Indication: PSORIASIS
     Dosage: :OTHER?
     Route: 058
     Dates: start: 201707, end: 201812

REACTIONS (2)
  - Skin disorder [None]
  - Treatment failure [None]

NARRATIVE: CASE EVENT DATE: 20181218
